FAERS Safety Report 19257233 (Version 1)
Quarter: 2021Q2

REPORT INFORMATION
  Report Type: Other
  Country: US (occurrence: US)
  Receive Date: 20210514
  Receipt Date: 20210514
  Transmission Date: 20210717
  Serious: Yes (Hospitalization)
  Sender: FDA-Public Use
  Company Number: US-ROCHE-2692520

PATIENT
  Age: 46 Year
  Sex: Male
  Weight: 64.47 kg

DRUGS (2)
  1. OCREVUS [Suspect]
     Active Substance: OCRELIZUMAB
     Indication: MULTIPLE SCLEROSIS
     Route: 042
     Dates: start: 202006
  2. OCREVUS [Suspect]
     Active Substance: OCRELIZUMAB
     Indication: PRIMARY PROGRESSIVE MULTIPLE SCLEROSIS
     Dosage: SPLIT DOSE
     Route: 042
     Dates: start: 201912, end: 20191223

REACTIONS (8)
  - Mass [Not Recovered/Not Resolved]
  - Flushing [Recovered/Resolved]
  - Wheelchair user [Unknown]
  - Multiple sclerosis relapse [Recovered/Resolved]
  - White blood cell count increased [Recovered/Resolved]
  - Multiple sclerosis [Unknown]
  - Oropharyngeal pain [Recovered/Resolved]
  - Vitamin D decreased [Recovered/Resolved]

NARRATIVE: CASE EVENT DATE: 201912
